FAERS Safety Report 5490932-8 (Version None)
Quarter: 2007Q4

REPORT INFORMATION
  Report Type: 
  Country: None (occurrence: None)
  Receive Date: 20071019
  Receipt Date: 20071012
  Transmission Date: 20080405
  Serious: Yes (Death, Hospitalization, Other)
  Sender: FDA-Public Use
  Company Number: HQWYE938517MAY04

PATIENT
  Sex: Female

DRUGS (5)
  1. PREMARIN [Suspect]
     Indication: MENOPAUSAL SYMPTOMS
     Dosage: UNKNOWN
     Dates: start: 19930101, end: 20010101
  2. PREFEST [Suspect]
  3. ORTHO-EST [Suspect]
  4. PROVERA [Suspect]
     Indication: MENOPAUSAL SYMPTOMS
     Dosage: UNKNOWN
     Dates: start: 19930101, end: 20010101
  5. PREMPRO [Suspect]

REACTIONS (1)
  - BREAST CANCER METASTATIC [None]
